FAERS Safety Report 6414757-1 (Version None)
Quarter: 2009Q4

REPORT INFORMATION
  Report Type: 
  Country: None (occurrence: None)
  Receive Date: 20091026
  Receipt Date: 20091026
  Transmission Date: 20100525
  Serious: No
  Sender: FDA-Public Use
  Company Number: None

PATIENT
  Age: 55 Year
  Sex: Male
  Weight: 76.6579 kg

DRUGS (7)
  1. LISINOPRIL [Suspect]
     Indication: CARDIAC OPERATION
     Dosage: 2.5 MG DAILY OTHER
     Route: 050
     Dates: start: 20091021, end: 20091021
  2. LISINOPRIL [Suspect]
     Indication: POSTOPERATIVE CARE
     Dosage: 2.5 MG DAILY OTHER
     Route: 050
     Dates: start: 20091021, end: 20091021
  3. AMIODARONE [Concomitant]
  4. COREG [Concomitant]
  5. ASPIRIN [Concomitant]
  6. COUMADIN [Concomitant]
  7. PEPCID [Concomitant]

REACTIONS (1)
  - PALPITATIONS [None]
